FAERS Safety Report 9778971 (Version 2)
Quarter: 2014Q1

REPORT INFORMATION
  Report Type: Spontaneous
  Country: US (occurrence: US)
  Receive Date: 20131223
  Receipt Date: 20140123
  Transmission Date: 20141002
  Serious: Yes (Death)
  Sender: FDA-Public Use
  Company Number: US-PFIZER INC-2013363009

PATIENT
  Age: 59 Year
  Sex: Female

DRUGS (7)
  1. REVATIO [Suspect]
     Indication: PULMONARY ARTERIAL HYPERTENSION
     Dosage: 20 MG, 2X/DAY
     Route: 048
  2. FUROSEMIDE [Concomitant]
     Indication: CARDIAC FAILURE
     Dosage: 80 MG, 2X/DAY
  3. COREG [Concomitant]
     Indication: CARDIAC FAILURE
     Dosage: 6.25 UNK, 2X/DAY
  4. SIMVASTATIN [Concomitant]
     Indication: LIPIDS
     Dosage: 20 MG, DAILY (QHS)
  5. ASA [Concomitant]
     Indication: DIABETES MELLITUS
     Dosage: 81 MG, 1X/DAY
  6. METFORMIN [Concomitant]
     Indication: DIABETES MELLITUS
     Dosage: 1000 MG, 2X/DAY
  7. FLECAINIDE [Concomitant]
     Dosage: 100 MG, 2X/DAY

REACTIONS (1)
  - Cardiac death [Fatal]
